FAERS Safety Report 18640026 (Version 1)
Quarter: 2020Q4

REPORT INFORMATION
  Report Type: Spontaneous
  Country: US (occurrence: US)
  Receive Date: 20201220
  Receipt Date: 20201220
  Transmission Date: 20210114
  Serious: No
  Sender: FDA-Public Use
  Company Number: US-PACIRA-202000411

PATIENT

DRUGS (5)
  1. KETOROLAC [Interacting]
     Active Substance: KETOROLAC TROMETHAMINE
     Indication: ORTHOPAEDIC PROCEDURE
     Dosage: NOT PROVIDED
     Route: 065
  2. EXPAREL [Suspect]
     Active Substance: BUPIVACAINE
     Indication: ORTHOPAEDIC PROCEDURE
     Dosage: NOT PROVIDED
     Route: 065
  3. EPINEPHRINE. [Interacting]
     Active Substance: EPINEPHRINE
     Indication: ORTHOPAEDIC PROCEDURE
     Dosage: NOT PROVIDED
     Route: 065
  4. MORPHINE [Interacting]
     Active Substance: MORPHINE
     Indication: ORTHOPAEDIC PROCEDURE
     Dosage: NOT PROVIDED
     Route: 065
  5. BUPIVACAIN [Suspect]
     Active Substance: BUPIVACAINE
     Indication: ORTHOPAEDIC PROCEDURE
     Dosage: NOT PROVIDED
     Route: 065

REACTIONS (2)
  - Labelled drug-drug interaction medication error [Unknown]
  - Off label use [Unknown]
